FAERS Safety Report 20323720 (Version 1)
Quarter: 2022Q1

REPORT INFORMATION
  Report Type: Report from Study
  Country: CA (occurrence: CA)
  Receive Date: 20220111
  Receipt Date: 20220111
  Transmission Date: 20220424
  Serious: Yes (Death, Hospitalization, Disabling, Other)
  Sender: FDA-Public Use
  Company Number: CA-PFIZER INC-202200019538

PATIENT
  Age: 69 Year
  Sex: Male
  Weight: 67 kg

DRUGS (6)
  1. INLYTA [Suspect]
     Active Substance: AXITINIB
     Dosage: 5 MG, 1 EVERY 1 DAYS
     Route: 065
  2. INLYTA [Suspect]
     Active Substance: AXITINIB
     Dosage: 3 MG, 2 EVERY 1 DAYS
     Route: 065
  3. PEMBROLIZUMAB [Suspect]
     Active Substance: PEMBROLIZUMAB
     Indication: Renal cell carcinoma
     Dosage: 200 MG, 1 EVERY 3 WEEKS
     Route: 065
  4. PEMBROLIZUMAB [Suspect]
     Active Substance: PEMBROLIZUMAB
     Dosage: 200 MG, 1 EVERY 3 WEEKS
     Route: 065
  5. PEMBROLIZUMAB [Suspect]
     Active Substance: PEMBROLIZUMAB
     Dosage: 200 MG, 1 EVERY 3 WEEKS
     Route: 065
  6. PEMBROLIZUMAB [Suspect]
     Active Substance: PEMBROLIZUMAB
     Indication: Renal cell carcinoma
     Dosage: 200 MG, 1 EVERY 3 WEEKS
     Route: 042

REACTIONS (32)
  - Abdominal pain [Fatal]
  - Blood pressure abnormal [Fatal]
  - Constipation [Fatal]
  - Decreased appetite [Fatal]
  - Dizziness [Fatal]
  - Dry mouth [Fatal]
  - Dyspepsia [Fatal]
  - Fatigue [Fatal]
  - Malaise [Fatal]
  - Nausea [Fatal]
  - Vomiting [Fatal]
  - Vomiting [Fatal]
  - Weight abnormal [Fatal]
  - Anxiety [Fatal]
  - Back pain [Fatal]
  - Cognitive disorder [Fatal]
  - Depressed mood [Fatal]
  - Depression [Fatal]
  - Disturbance in attention [Fatal]
  - Dysphagia [Fatal]
  - Dyspnoea [Fatal]
  - Fear [Fatal]
  - Feeling abnormal [Fatal]
  - Feeling abnormal [Fatal]
  - Feelings of worthlessness [Fatal]
  - Flank pain [Fatal]
  - Gait disturbance [Fatal]
  - Memory impairment [Fatal]
  - Pain [Fatal]
  - Sleep disorder [Fatal]
  - Somnolence [Fatal]
  - Neoplasm progression [Fatal]
